FAERS Safety Report 15165123 (Version 1)
Quarter: 2018Q3

REPORT INFORMATION
  Report Type: Spontaneous
  Country: AU (occurrence: AU)
  Receive Date: 20180719
  Receipt Date: 20180719
  Transmission Date: 20181010
  Serious: Yes (Hospitalization, Other)
  Sender: FDA-Public Use
  Company Number: PHHY2018AU046656

PATIENT
  Age: 47 Year
  Sex: Female

DRUGS (2)
  1. PAZOPANIB [Suspect]
     Active Substance: PAZOPANIB
     Indication: CLEAR CELL RENAL CELL CARCINOMA
     Dosage: 800 MG, QD
     Route: 065
  2. PAMIDRONATE [Concomitant]
     Active Substance: PAMIDRONATE DISODIUM
     Indication: PRODUCT USED FOR UNKNOWN INDICATION
     Route: 065

REACTIONS (14)
  - Pneumonia aspiration [Unknown]
  - Decubitus ulcer [Unknown]
  - Femoral neck fracture [Unknown]
  - Anal incontinence [Unknown]
  - Pneumocystis jirovecii pneumonia [Unknown]
  - Asthenia [Unknown]
  - Hypercalcaemia [Recovered/Resolved]
  - Pain [Unknown]
  - Arthralgia [Unknown]
  - Muscular weakness [Unknown]
  - Mobility decreased [Unknown]
  - Hypoaesthesia [Unknown]
  - Polyuria [Unknown]
  - Myopathy [Unknown]
